FAERS Safety Report 18256243 (Version 1)
Quarter: 2020Q3

REPORT INFORMATION
  Report Type: Spontaneous
  Country: GB (occurrence: GB)
  Receive Date: 20200911
  Receipt Date: 20200911
  Transmission Date: 20201103
  Serious: Yes (Hospitalization)
  Sender: FDA-Public Use
  Company Number: GB-TEVA-2020-GB-1825537

PATIENT
  Age: 62 Year
  Sex: Female
  Weight: 54 kg

DRUGS (8)
  1. LINAGLIPTIN [Concomitant]
     Active Substance: LINAGLIPTIN
  2. CALCICHEW D3 [Concomitant]
     Active Substance: CALCIUM\CHOLECALCIFEROL
  3. FUROSEMIDE SODIUM [Concomitant]
     Active Substance: FUROSEMIDE SODIUM
  4. RAMIPRIL. [Suspect]
     Active Substance: RAMIPRIL
     Indication: ACCELERATED HYPERTENSION
     Dosage: 1.25
     Route: 048
     Dates: start: 20200803, end: 20200809
  5. PREDNISOLONE. [Concomitant]
     Active Substance: PREDNISOLONE
  6. TACROLIMUS. [Concomitant]
     Active Substance: TACROLIMUS
  7. SERTRALINE HYDROCHLORIDE. [Concomitant]
     Active Substance: SERTRALINE HYDROCHLORIDE
  8. COTRIMOXAZOLE [Concomitant]
     Active Substance: SULFAMETHOXAZOLE\TRIMETHOPRIM

REACTIONS (4)
  - Headache [Unknown]
  - Dyspnoea [Unknown]
  - Diarrhoea [Unknown]
  - General physical health deterioration [Unknown]
